FAERS Safety Report 10453846 (Version 1)
Quarter: 2014Q3

REPORT INFORMATION
  Report Type: Spontaneous
  Country: US (occurrence: US)
  Receive Date: 20140915
  Receipt Date: 20140915
  Transmission Date: 20150326
  Serious: No
  Sender: FDA-Public Use
  Company Number: US-BRISTOL-MYERS SQUIBB COMPANY-21309984

PATIENT
  Age: 75 Year
  Sex: Male
  Weight: 97.5 kg

DRUGS (1)
  1. ELIQUIS [Suspect]
     Active Substance: APIXABAN

REACTIONS (2)
  - Fall [Unknown]
  - Pain [Recovering/Resolving]

NARRATIVE: CASE EVENT DATE: 2014
